FAERS Safety Report 24571996 (Version 2)
Quarter: 2024Q4

REPORT INFORMATION
  Report Type: Spontaneous
  Country: RU (occurrence: RU)
  Receive Date: 20241101
  Receipt Date: 20241107
  Transmission Date: 20250114
  Serious: Yes (Other)
  Sender: SERVIER
  Company Number: RU-SERVIER-S24013872

PATIENT

DRUGS (7)
  1. ONCASPAR [Suspect]
     Active Substance: PEGASPARGASE
     Indication: Acute lymphocytic leukaemia
     Dosage: 1550 IU/M2
     Route: 042
     Dates: start: 20240501, end: 20240501
  2. ONCASPAR [Suspect]
     Active Substance: PEGASPARGASE
     Dosage: UNK, FIRST CONSOLIDATION TREATMENT
     Route: 042
     Dates: start: 2024, end: 2024
  3. ONCASPAR [Suspect]
     Active Substance: PEGASPARGASE
     Dosage: 1500 IU/M2, FISRT DOSE OF SECOND CONSOLIDATION TREATMENT
     Route: 042
     Dates: start: 2024, end: 2024
  4. ONCASPAR [Suspect]
     Active Substance: PEGASPARGASE
     Dosage: 1500 IU/M2, SECOND DOSE OF SECOND CONSOLIDATION
     Route: 042
     Dates: start: 20240905, end: 20240905
  5. ACETAMINOPHEN [Concomitant]
     Active Substance: ACETAMINOPHEN
     Indication: Premedication
     Dosage: UNK
     Route: 065
     Dates: start: 20240905, end: 20240905
  6. CETIRIZINE [Concomitant]
     Active Substance: CETIRIZINE HYDROCHLORIDE
     Indication: Premedication
     Dosage: UNK
     Route: 065
     Dates: start: 20240905, end: 20240905
  7. DIPHENHYDRAMINE [Concomitant]
     Active Substance: DIPHENHYDRAMINE
     Indication: Premedication
     Dosage: UNK
     Route: 065
     Dates: start: 20240905, end: 20240905

REACTIONS (3)
  - Transient ischaemic attack [Recovered/Resolved]
  - Transient ischaemic attack [Recovered/Resolved]
  - Blood triglycerides increased [Recovering/Resolving]

NARRATIVE: CASE EVENT DATE: 20240101
